FAERS Safety Report 17387616 (Version 1)
Quarter: 2020Q1

REPORT INFORMATION
  Report Type: Spontaneous
  Country: US (occurrence: US)
  Receive Date: 20200122
  Receipt Date: 20200122
  Transmission Date: 20200409
  Serious: Yes (Hospitalization, Disabling)
  Sender: FDA-Public Use
  Company Number: None

PATIENT
  Age: 88 Year
  Sex: Female
  Weight: 90.72 kg

DRUGS (12)
  1. ISOSIRBIDE [Concomitant]
  2. SERTRALINE [Concomitant]
     Active Substance: SERTRALINE HYDROCHLORIDE
  3. FUROSEMIDE GLIMEPRIDED [Concomitant]
  4. HYDROCODONE/ACET [Concomitant]
  5. LEVOFLOXACIN. [Suspect]
     Active Substance: LEVOFLOXACIN
     Indication: URINARY TRACT INFECTION
     Dosage: ?          QUANTITY:3 DF DOSAGE FORM;OTHER FREQUENCY:1 DAY;?
     Route: 048
     Dates: start: 20190722, end: 20190725
  6. O2 4L [Concomitant]
  7. JANUVIA [Concomitant]
     Active Substance: SITAGLIPTIN PHOSPHATE
  8. LORAZEPAM. [Concomitant]
     Active Substance: LORAZEPAM
  9. SPIRONOLACTONE. [Concomitant]
     Active Substance: SPIRONOLACTONE
  10. LOSARTAN. [Concomitant]
     Active Substance: LOSARTAN
  11. LYRICA [Concomitant]
     Active Substance: PREGABALIN
  12. NEXIUM [Concomitant]
     Active Substance: ESOMEPRAZOLE MAGNESIUM

REACTIONS (6)
  - Joint swelling [None]
  - Skin discolouration [None]
  - Skin exfoliation [None]
  - Headache [None]
  - Pain in extremity [None]
  - Ear pain [None]

NARRATIVE: CASE EVENT DATE: 20190722
